FAERS Safety Report 6731024-7 (Version None)
Quarter: 2010Q2

REPORT INFORMATION
  Report Type: 
  Country: None (occurrence: None)
  Receive Date: 20100514
  Receipt Date: 20100331
  Transmission Date: 20101027
  Serious: Yes (Other)
  Sender: FDA-Public Use
  Company Number: 201003AGG00924

PATIENT

DRUGS (3)
  1. AGGRASTAT [Suspect]
     Indication: PLATELET AGGREGATION INHIBITION
     Dosage: (0.15 MICROGM/KG/MIN/UNK INTRAVENOUS (NOT OTHERWISE SPECIFIED), (25 MCG/KG 25 MICROGM/KG/MIN/UNK INT
     Route: 042
  2. BIVALIRUDIN [Concomitant]
  3. HEPARIN [Concomitant]

REACTIONS (2)
  - MYOCARDIAL INFARCTION [None]
  - PROCEDURAL COMPLICATION [None]
